FAERS Safety Report 6061233-4 (Version None)
Quarter: 2009Q1

REPORT INFORMATION
  Report Type: 
  Country: None (occurrence: None)
  Receive Date: 20090202
  Receipt Date: 20090128
  Transmission Date: 20090719
  Serious: Yes (Other)
  Sender: FDA-Public Use
  Company Number: US-ASTRAZENECA-2008UW25585

PATIENT
  Age: 81 Year
  Sex: Female
  Weight: 44.5 kg

DRUGS (8)
  1. SYMBICORT [Suspect]
     Indication: CHRONIC OBSTRUCTIVE PULMONARY DISEASE
     Dosage: 160/4.5; 640MCG TOTAL DAILY DOSE
     Route: 055
     Dates: start: 20080701, end: 20080101
  2. SYMBICORT [Suspect]
     Dosage: 80/4.5MCG 2 PUFFS BID AND THEN 2 PUFFS QD; 320 MCH TOTALY DAILY DOSE
     Route: 055
  3. ATACAND [Concomitant]
     Indication: HYPERTENSION
     Route: 048
  4. ESTRACE [Concomitant]
     Route: 048
  5. COMBIVENT [Concomitant]
     Indication: EMPHYSEMA
     Route: 055
  6. ATIVAN [Concomitant]
     Indication: TREMOR
     Route: 048
  7. ATIVAN [Concomitant]
     Indication: ANXIETY
     Route: 048
  8. QVAR 40 [Concomitant]

REACTIONS (13)
  - BACK PAIN [None]
  - CHILLS [None]
  - DIARRHOEA [None]
  - HEADACHE [None]
  - HEART RATE INCREASED [None]
  - NERVOUSNESS [None]
  - PARANOIA [None]
  - PRURITUS [None]
  - SCAB [None]
  - SKIN LESION [None]
  - SYNCOPE [None]
  - TREMOR [None]
  - VOMITING [None]
